FAERS Safety Report 9459101 (Version 2)
Quarter: 2013Q3

REPORT INFORMATION
  Report Type: Spontaneous
  Country: DK (occurrence: JP)
  Receive Date: 20130814
  Receipt Date: 20130917
  Transmission Date: 20140515
  Serious: Yes (Hospitalization)
  Sender: FDA-Public Use
  Company Number: JP-FRI-1000047742

PATIENT
  Age: 52 Year
  Sex: Male

DRUGS (6)
  1. LEXAPRO [Suspect]
     Indication: DEPRESSION
     Dosage: 10 MG
     Route: 048
     Dates: start: 20120810
  2. REMERON [Concomitant]
     Indication: DEPRESSION
     Dosage: 15 MG
     Route: 048
     Dates: start: 20120720
  3. LEXOTAN [Concomitant]
     Indication: DEPRESSION
     Dosage: 15 MG
     Route: 048
     Dates: start: 20120806
  4. SILECE [Concomitant]
     Indication: DEPRESSION
     Dosage: 4 MG
     Route: 048
     Dates: start: 20120730
  5. SEROQUEL [Concomitant]
     Indication: DEPRESSION
     Dosage: 75 MG
     Route: 048
     Dates: start: 20120817
  6. SEROQUEL [Concomitant]
     Dosage: 100 MG
     Route: 048
     Dates: start: 20120817

REACTIONS (3)
  - Activation syndrome [Unknown]
  - Abdominal pain [Recovered/Resolved]
  - Autonomic nervous system imbalance [Not Recovered/Not Resolved]
